FAERS Safety Report 17442779 (Version 1)
Quarter: 2020Q1

REPORT INFORMATION
  Report Type: Spontaneous
  Country: US (occurrence: US)
  Receive Date: 20200206
  Receipt Date: 20200206
  Transmission Date: 20200409
  Serious: No
  Sender: FDA-Public Use
  Company Number: None

PATIENT
  Age: 51 Year
  Sex: Female

DRUGS (1)
  1. HUMIRA [Suspect]
     Active Substance: ADALIMUMAB
     Indication: RHEUMATOID ARTHRITIS
     Dosage: ?          OTHER ROUTE:INTO THE SKIN?
     Dates: start: 201908

REACTIONS (3)
  - Myalgia [None]
  - Fatigue [None]
  - Hallucination, visual [None]

NARRATIVE: CASE EVENT DATE: 202001
